FAERS Safety Report 5867884-1 (Version None)
Quarter: 2008Q3

REPORT INFORMATION
  Report Type: 
  Country: None (occurrence: None)
  Receive Date: 20080902
  Receipt Date: 20080709
  Transmission Date: 20090109
  Serious: No
  Sender: FDA-Public Use
  Company Number: US-ABBOTT-08P-163-0461820-00

PATIENT
  Sex: Female
  Weight: 43.13 kg

DRUGS (4)
  1. DEPAKOTE ER [Suspect]
     Indication: BIPOLAR DISORDER
     Route: 048
     Dates: start: 20080101
  2. QUETIAPINE [Concomitant]
     Indication: INSOMNIA
     Route: 048
     Dates: start: 20080629
  3. DIAZEPAM [Concomitant]
     Indication: ANXIETY
     Route: 048
     Dates: start: 20070101
  4. OBETROL [Concomitant]
     Indication: ATTENTION DEFICIT/HYPERACTIVITY DISORDER
     Route: 048
     Dates: start: 20080629

REACTIONS (6)
  - ANOREXIA [None]
  - DIARRHOEA [None]
  - DRUG LEVEL DECREASED [None]
  - MEDICATION RESIDUE [None]
  - STOMACH DISCOMFORT [None]
  - WEIGHT DECREASED [None]
